FAERS Safety Report 4510294-X (Version None)
Quarter: 2004Q4

REPORT INFORMATION
  Report Type: 
  Country: None (occurrence: None)
  Receive Date: 20041122
  Receipt Date: 20041108
  Transmission Date: 20050328
  Serious: Yes (Hospitalization, Other)
  Sender: FDA-Public Use
  Company Number: HQWYE326009NOV04

PATIENT
  Age: 45 Year
  Sex: Male
  Weight: 61.8 kg

DRUGS (6)
  1. PROTONIX [Suspect]
     Indication: UPPER GASTROINTESTINAL HAEMORRHAGE
     Dosage: SEE IMAGE
     Route: 042
     Dates: start: 20040530, end: 20040530
  2. PROTONIX [Suspect]
     Indication: UPPER GASTROINTESTINAL HAEMORRHAGE
     Dosage: SEE IMAGE
     Route: 042
     Dates: start: 20040530, end: 20040606
  3. DALTIPARIN SODIUM (HEPARIN-FRACTION, SODIUM SALT) [Concomitant]
  4. LORAZEPAM [Concomitant]
  5. MIDAZOLAM (MODAZOLAM) [Concomitant]
  6. POTASSIUM CHLORIDE [Concomitant]

REACTIONS (4)
  - CATHETER RELATED COMPLICATION [None]
  - INFLAMMATION [None]
  - THROMBOPHLEBITIS [None]
  - THROMBOSIS [None]
